FAERS Safety Report 9147603 (Version 1)
Quarter: 2013Q1

REPORT INFORMATION
  Report Type: Spontaneous
  Country: US (occurrence: US)
  Receive Date: 20130307
  Receipt Date: 20130307
  Transmission Date: 20140127
  Serious: No
  Sender: FDA-Public Use
  Company Number: US-B.I. PHARMACEUTICALS,INC./RIDGEFIELD-2013-BI-05931BP

PATIENT
  Age: 75 Year
  Sex: Female
  Weight: 56 kg

DRUGS (3)
  1. PRADAXA [Suspect]
     Indication: ATRIAL FIBRILLATION
     Dosage: 300 MG
     Route: 048
  2. LOSARTAN [Concomitant]
     Indication: HYPERTENSION
  3. UNSPECIFED EYE DROP [Concomitant]
     Indication: GLAUCOMA

REACTIONS (2)
  - Contusion [Not Recovered/Not Resolved]
  - Head injury [Not Recovered/Not Resolved]
